FAERS Safety Report 19608227 (Version 1)
Quarter: 2021Q3

REPORT INFORMATION
  Report Type: Spontaneous
  Country: US (occurrence: US)
  Receive Date: 20210721
  Receipt Date: 20210721
  Transmission Date: 20211014
  Serious: No
  Sender: FDA-Public Use
  Company Number: None

PATIENT

DRUGS (3)
  1. INFLECTRA [Suspect]
     Active Substance: INFLIXIMAB-DYYB
  2. RENFLEXIS [Suspect]
     Active Substance: INFLIXIMAB-ABDA
  3. REMICADE [Suspect]
     Active Substance: INFLIXIMAB

REACTIONS (2)
  - Product substitution [None]
  - Circumstance or information capable of leading to medication error [None]
